FAERS Safety Report 15546232 (Version 1)
Quarter: 2018Q4

REPORT INFORMATION
  Report Type: Report from Study
  Country: BR (occurrence: BR)
  Receive Date: 20181024
  Receipt Date: 20181024
  Transmission Date: 20190205
  Serious: Yes (Other)
  Sender: FDA-Public Use
  Company Number: PHHY2017BR143473

PATIENT
  Age: 74 Year
  Sex: Female
  Weight: 58 kg

DRUGS (3)
  1. VITAMIN D [Concomitant]
     Active Substance: CHOLECALCIFEROL
     Indication: PRODUCT USED FOR UNKNOWN INDICATION
     Dosage: UNK
     Route: 065
  2. ACLASTA [Suspect]
     Active Substance: ZOLEDRONIC ACID
     Indication: OSTEOPOROSIS
     Dosage: 1 DF (5MG/100ML), Q12MO
     Route: 042
     Dates: start: 20170613
  3. CALCIUM [Concomitant]
     Active Substance: CALCIUM
     Indication: PRODUCT USED FOR UNKNOWN INDICATION
     Route: 065

REACTIONS (13)
  - Nervousness [Not Recovered/Not Resolved]
  - Pain in extremity [Not Recovered/Not Resolved]
  - Drug ineffective [Unknown]
  - Blood pressure increased [Unknown]
  - Osteoporosis [Unknown]
  - Gait disturbance [Recovering/Resolving]
  - Weight decreased [Unknown]
  - Blood calcium increased [Unknown]
  - Hyperthyroidism [Unknown]
  - Benign neoplasm of thyroid gland [Recovered/Resolved]
  - Condition aggravated [Unknown]
  - Thyroid disorder [Unknown]
  - Weight increased [Unknown]

NARRATIVE: CASE EVENT DATE: 201709
